FAERS Safety Report 14628224 (Version 1)
Quarter: 2018Q1

REPORT INFORMATION
  Report Type: Spontaneous
  Country: US (occurrence: US)
  Receive Date: 20180312
  Receipt Date: 20180312
  Transmission Date: 20180509
  Serious: No
  Sender: FDA-Public Use
  Company Number: US-ALLERGAN-1731146US

PATIENT
  Sex: Female

DRUGS (2)
  1. TERCONAZOLE. [Concomitant]
     Active Substance: TERCONAZOLE
     Indication: VAGINAL INFECTION
     Route: 067
  2. ESTRACE [Suspect]
     Active Substance: ESTRADIOL
     Indication: PREMENSTRUAL SYNDROME
     Dosage: UNK UNK, Q WEEK
     Route: 067

REACTIONS (3)
  - Inappropriate schedule of drug administration [Unknown]
  - Vaginal infection [Recovered/Resolved]
  - Fibrocystic breast disease [Unknown]
